FAERS Safety Report 4353863-2 (Version None)
Quarter: 2004Q2

REPORT INFORMATION
  Report Type: 
  Country: None (occurrence: None)
  Receive Date: 20040503
  Receipt Date: 20040426
  Transmission Date: 20050107
  Serious: Yes (Life-Threatening, Hospitalization, Disabling, Other)
  Sender: FDA-Public Use
  Company Number: 200410288BNE

PATIENT
  Age: 90 Year
  Sex: Male

DRUGS (3)
  1. ASPIRIN [Suspect]
     Indication: PROPHYLAXIS
     Dosage: 75 MG, TOTAL DAILY, ORAL
     Route: 048
     Dates: start: 19940101, end: 20040228
  2. ALLPOURINOL [Concomitant]
  3. METHYLDOPA [Concomitant]

REACTIONS (3)
  - CONSTIPATION [None]
  - FAECES DISCOLOURED [None]
  - HAEMATEMESIS [None]
